FAERS Safety Report 5256614-2 (Version None)
Quarter: 2007Q1

REPORT INFORMATION
  Report Type: 
  Country: None (occurrence: None)
  Receive Date: 20070306
  Receipt Date: 20070222
  Transmission Date: 20070707
  Serious: Yes (Other)
  Sender: FDA-Public Use
  Company Number: AU-SANOFI-SYNTHELABO-A01200701967

PATIENT
  Age: 61 Year
  Sex: Female

DRUGS (1)
  1. ZOLPIDEM TARTRATE [Suspect]
     Indication: DRUG USE FOR UNKNOWN INDICATION
     Dosage: 10 MG
     Route: 048

REACTIONS (3)
  - AMNESIA [None]
  - ROAD TRAFFIC ACCIDENT [None]
  - TRANSIENT ISCHAEMIC ATTACK [None]
